FAERS Safety Report 8834005 (Version 1)
Quarter: 2012Q4

REPORT INFORMATION
  Report Type: 
  Country: US (occurrence: US)
  Receive Date: 20121010
  Receipt Date: 20121010
  Transmission Date: 20130627
  Serious: Yes (Other)
  Sender: FDA-Public Use
  Company Number: CHPA2012US020723

PATIENT
  Age: 56 Year
  Sex: Female

DRUGS (1)
  1. THERAFLU NIGHTTIME SEVERE COLD [Suspect]
     Indication: HYPERSENSITIVITY
     Dosage: 2 TBSP as needed
     Route: 048
     Dates: end: 2012

REACTIONS (2)
  - Upper respiratory tract infection [Recovered/Resolved]
  - Off label use [Unknown]
